FAERS Safety Report 18079325 (Version 1)
Quarter: 2020Q3

REPORT INFORMATION
  Report Type: Spontaneous
  Country: US (occurrence: US)
  Receive Date: 20200727
  Receipt Date: 20200727
  Transmission Date: 20201103
  Serious: Yes (Other)
  Sender: FDA-Public Use
  Company Number: None

PATIENT
  Age: 74 Year
  Sex: Female
  Weight: 69.75 kg

DRUGS (6)
  1. CENTRUM SILVER VITAMIN [Concomitant]
  2. TITANIUM STENTS IN BOTH EYES [Concomitant]
  3. ROSUVASTATIN 40 MG [Suspect]
     Active Substance: ROSUVASTATIN
     Indication: BLOOD CHOLESTEROL INCREASED
     Dosage: ?          QUANTITY:1 TABLET(S);?
     Route: 048
     Dates: start: 20200618, end: 20200724
  4. OMEPRAZOLE. [Concomitant]
     Active Substance: OMEPRAZOLE
  5. VITAMIN D [Concomitant]
     Active Substance: VITAMIN D NOS
  6. CALCIUM [Concomitant]
     Active Substance: CALCIUM

REACTIONS (3)
  - Arthralgia [None]
  - Myalgia [None]
  - Product substitution issue [None]

NARRATIVE: CASE EVENT DATE: 20200703
